FAERS Safety Report 7527563-1 (Version None)
Quarter: 2011Q2

REPORT INFORMATION
  Report Type: 
  Country: None (occurrence: None)
  Receive Date: 20110527
  Receipt Date: 20110517
  Transmission Date: 20111010
  Serious: Yes (Death)
  Sender: FDA-Public Use
  Company Number: 1000020789

PATIENT
  Age: 43 Year
  Sex: Male

DRUGS (4)
  1. ESCITALOPRAM [Suspect]
     Indication: DEPRESSION
     Dosage: 20 MG (20 MG,1 IN 1 D), ORAL
  2. GARDENAL (PHENOBARBITAL) (PHENOBARBITAL) [Concomitant]
  3. ABILIFY [Suspect]
     Dosage: 30 MG (15 MG,2 IN 1 D)
  4. KEPRA (LEVETIRACETAM) (TABLETS) (LEVETIRACETAM) [Concomitant]

REACTIONS (17)
  - NEUROLEPTIC MALIGNANT SYNDROME [None]
  - MULTIPLE DRUG OVERDOSE [None]
  - NEUROPATHY PERIPHERAL [None]
  - RHABDOMYOLYSIS [None]
  - HEPATIC NEOPLASM [None]
  - HEPATIC CIRRHOSIS [None]
  - VARICES OESOPHAGEAL [None]
  - COMA [None]
  - PORTAL HYPERTENSION [None]
  - MIOSIS [None]
  - HYPERTHERMIA [None]
  - POISONING DELIBERATE [None]
  - ALCOHOL USE [None]
  - DRUG DOSE OMISSION [None]
  - STATUS EPILEPTICUS [None]
  - HEPATIC FAILURE [None]
  - DISSEMINATED INTRAVASCULAR COAGULATION [None]
